FAERS Safety Report 19578491 (Version 2)
Quarter: 2021Q4

REPORT INFORMATION
  Report Type: Other
  Country: CA (occurrence: CA)
  Receive Date: 20210720
  Receipt Date: 20211128
  Transmission Date: 20220303
  Serious: Yes (Other)
  Sender: FDA-Public Use
  Company Number: CA-CELLTRION INC.-2021CA009403

PATIENT

DRUGS (2)
  1. RITUXIMAB [Suspect]
     Active Substance: RITUXIMAB
     Indication: Rheumatoid arthritis
     Dosage: 1000 MILLIGRAM
     Route: 042
  2. LAMIVUDINE [Concomitant]
     Active Substance: LAMIVUDINE
     Dosage: 1 DOSAGE FORM
     Route: 065

REACTIONS (8)
  - Chest discomfort [Unknown]
  - Asthenia [Unknown]
  - Blood pressure fluctuation [Unknown]
  - Blood pressure increased [Unknown]
  - Heart rate increased [Unknown]
  - Throat irritation [Unknown]
  - Intentional product use issue [Unknown]
  - Off label use [Unknown]
